FAERS Safety Report 9980332 (Version 3)
Quarter: 2014Q2

REPORT INFORMATION
  Report Type: Spontaneous
  Country: CA (occurrence: CA)
  Receive Date: 20140307
  Receipt Date: 20140409
  Transmission Date: 20141212
  Serious: Yes (Hospitalization, Other)
  Sender: FDA-Public Use
  Company Number: CA-ROCHE-1360662

PATIENT
  Age: 69 Year
  Sex: Male

DRUGS (8)
  1. XOLAIR [Suspect]
     Indication: ASTHMA
     Route: 058
     Dates: start: 20131223
  2. AMLODIPINE [Concomitant]
  3. ATORVASTATIN [Concomitant]
  4. CETRIZINE [Concomitant]
  5. RANITIDINE [Concomitant]
  6. SINGULAIR [Concomitant]
  7. FLOVENT [Concomitant]
  8. RISEDRONATE [Concomitant]

REACTIONS (24)
  - Convulsion [Unknown]
  - Angioedema [Recovered/Resolved]
  - Nervous system disorder [Recovered/Resolved]
  - Dyskinesia [Unknown]
  - Gait disturbance [Unknown]
  - Gait disturbance [Unknown]
  - Musculoskeletal stiffness [Unknown]
  - Restless legs syndrome [Unknown]
  - Creutzfeldt-Jakob disease [Unknown]
  - Balance disorder [Unknown]
  - Muscle spasms [Unknown]
  - General physical health deterioration [Unknown]
  - Hallucination [Unknown]
  - Diplopia [Unknown]
  - Feeling hot [Unknown]
  - Dyspnoea [Unknown]
  - Confusional state [Unknown]
  - Tremor [Unknown]
  - Insomnia [Unknown]
  - Dysphonia [Unknown]
  - Productive cough [Unknown]
  - Somnolence [Unknown]
  - Dizziness [Unknown]
  - Malaise [Unknown]
